FAERS Safety Report 25785033 (Version 1)
Quarter: 2025Q3

REPORT INFORMATION
  Report Type: Spontaneous
  Country: US (occurrence: US)
  Receive Date: 20250910
  Receipt Date: 20250910
  Transmission Date: 20251020
  Serious: No
  Sender: COSETTE PHARMACEUTICALS INC
  Company Number: US-COSETTE-CP2025US000861

PATIENT

DRUGS (6)
  1. HYDROCORTISONE VALERATE [Suspect]
     Active Substance: HYDROCORTISONE VALERATE
     Indication: Erythema
     Route: 065
  2. HYDROCORTISONE VALERATE [Suspect]
     Active Substance: HYDROCORTISONE VALERATE
     Indication: Swelling
  3. HYDROCORTISONE VALERATE [Suspect]
     Active Substance: HYDROCORTISONE VALERATE
     Indication: Pruritus
  4. EPSOM SALT [Concomitant]
     Active Substance: MAGNESIUM SULFATE
     Route: 065
  5. EPSOM SALT [Concomitant]
     Active Substance: MAGNESIUM SULFATE
  6. EPSOM SALT [Concomitant]
     Active Substance: MAGNESIUM SULFATE
     Indication: Pruritus

REACTIONS (1)
  - Drug ineffective [Unknown]
